FAERS Safety Report 7801647-2 (Version None)
Quarter: 2011Q4

REPORT INFORMATION
  Report Type: 
  Country: None (occurrence: None)
  Receive Date: 20111007
  Receipt Date: 20110928
  Transmission Date: 20120403
  Serious: Yes (Other)
  Sender: FDA-Public Use
  Company Number: US-ASTELLAS-2011US003326

PATIENT
  Sex: Female

DRUGS (2)
  1. ERLOTINIB HYDROCHLORIDE [Suspect]
     Dosage: 100 MG, UID/QD
     Route: 048
  2. ERLOTINIB HYDROCHLORIDE [Suspect]
     Indication: LUNG CARCINOMA CELL TYPE UNSPECIFIED STAGE 0
     Dosage: 150 MG, UID/QD
     Route: 048
     Dates: start: 20110526

REACTIONS (11)
  - FATIGUE [None]
  - TRANSIENT ISCHAEMIC ATTACK [None]
  - ANAEMIA [None]
  - MUSCULAR WEAKNESS [None]
  - THROMBOSIS [None]
  - GASTROINTESTINAL HAEMORRHAGE [None]
  - COLITIS [None]
  - RASH [None]
  - DIARRHOEA [None]
  - HAEMOGLOBIN DECREASED [None]
  - THROMBOCYTOPENIA [None]
